FAERS Safety Report 7759078-X (Version None)
Quarter: 2011Q3

REPORT INFORMATION
  Report Type: 
  Country: None (occurrence: None)
  Receive Date: 20110919
  Receipt Date: 20110907
  Transmission Date: 20111222
  Serious: Yes (Hospitalization, Other)
  Sender: FDA-Public Use
  Company Number: PHFR2011GB03642

PATIENT
  Sex: Male

DRUGS (4)
  1. CLOZAPINE [Suspect]
     Dosage: UNK
     Route: 048
     Dates: start: 20110815
  2. OMEPRAZOLE [Concomitant]
     Indication: GASTRIC DISORDER
  3. CLOZAPINE [Suspect]
     Indication: SCHIZOPHRENIA
     Route: 048
     Dates: start: 20110519, end: 20110812
  4. TPN [Concomitant]

REACTIONS (10)
  - SEPSIS [None]
  - HIATUS HERNIA [None]
  - GASTROINTESTINAL HAEMORRHAGE [None]
  - WHITE BLOOD CELL COUNT DECREASED [None]
  - TACHYCARDIA [None]
  - BARRETT'S OESOPHAGUS [None]
  - GASTROINTESTINAL DISORDER [None]
  - OESOPHAGEAL ULCER [None]
  - GASTRIC ULCER [None]
  - ANAEMIA [None]
